FAERS Safety Report 6113900-1 (Version None)
Quarter: 2009Q1

REPORT INFORMATION
  Report Type: 
  Country: None (occurrence: None)
  Receive Date: 20090312
  Receipt Date: 20080807
  Transmission Date: 20090719
  Serious: No
  Sender: FDA-Public Use
  Company Number: US-ABBOTT-08P-163-0469076-00

PATIENT
  Sex: Female

DRUGS (2)
  1. LUPRON DEPOT [Suspect]
     Indication: ENDOMETRIOSIS
     Dates: start: 20080728
  2. LUPRON DEPOT [Suspect]
     Dates: start: 20080530

REACTIONS (3)
  - CRYING [None]
  - HAEMORRHAGE [None]
  - MOOD ALTERED [None]
